FAERS Safety Report 25490150 (Version 1)
Quarter: 2025Q2

REPORT INFORMATION
  Report Type: Spontaneous
  Country: CA (occurrence: CA)
  Receive Date: 20250628
  Receipt Date: 20250628
  Transmission Date: 20250716
  Serious: Yes (Hospitalization, Other)
  Sender: JOHNSON AND JOHNSON
  Company Number: CA-JNJFOC-20250602772

PATIENT
  Age: 62 Year
  Sex: Female

DRUGS (3)
  1. INVEGA SUSTENNA [Suspect]
     Active Substance: PALIPERIDONE PALMITATE
     Indication: Product used for unknown indication
     Route: 065
     Dates: start: 20250526
  2. INVEGA SUSTENNA [Suspect]
     Active Substance: PALIPERIDONE PALMITATE
     Route: 065
     Dates: start: 20250530
  3. INVEGA SUSTENNA [Suspect]
     Active Substance: PALIPERIDONE PALMITATE

REACTIONS (11)
  - Tardive dyskinesia [Unknown]
  - Abnormal behaviour [Unknown]
  - Lip swelling [Unknown]
  - Hypersensitivity [Unknown]
  - Dysphagia [Unknown]
  - Peripheral swelling [Unknown]
  - Psoriasis [Unknown]
  - Tremor [Unknown]
  - Mouth swelling [Unknown]
  - Dry skin [Unknown]
  - Blood glucose increased [Unknown]
